FAERS Safety Report 10357830 (Version 5)
Quarter: 2014Q4

REPORT INFORMATION
  Report Type: Spontaneous
  Country: JP (occurrence: JP)
  Receive Date: 20140801
  Receipt Date: 20141007
  Transmission Date: 20150528
  Serious: Yes (Hospitalization, Other)
  Sender: FDA-Public Use
  Company Number: JP-BRISTOL-MYERS SQUIBB COMPANY-21240544

PATIENT
  Age: 74 Year
  Sex: Male

DRUGS (11)
  1. METGLUCO [Suspect]
     Active Substance: METFORMIN HYDROCHLORIDE
     Indication: DIABETES MELLITUS
     Dosage: 09-JUL-14 TO 15-JUL-14 750MG, 16-JUL-14 TO 17-JUL-14 500MG.3 DIVIDED DOSES PER DAY
     Route: 048
     Dates: start: 20110622, end: 20140717
  2. AMARYL [Concomitant]
     Active Substance: GLIMEPIRIDE
  3. DOGMATYL [Concomitant]
     Active Substance: SULPIRIDE
  4. OLMETEC [Concomitant]
     Active Substance: OLMESARTAN MEDOXOMIL
  5. PLAVIX [Concomitant]
     Active Substance: CLOPIDOGREL BISULFATE
  6. DIART [Concomitant]
     Active Substance: AZOSEMIDE
  7. WARFARIN [Concomitant]
     Active Substance: WARFARIN
  8. URSO [Concomitant]
     Active Substance: URSODIOL
  9. JANUVIA [Concomitant]
     Active Substance: SITAGLIPTIN PHOSPHATE
  10. PARIET [Concomitant]
     Active Substance: RABEPRAZOLE SODIUM
  11. ADALAT [Concomitant]
     Active Substance: NIFEDIPINE

REACTIONS (3)
  - Diarrhoea [Recovered/Resolved]
  - Shock [Recovering/Resolving]
  - Colitis [Unknown]

NARRATIVE: CASE EVENT DATE: 20140714
